APPROVED DRUG PRODUCT: FOSINOPRIL SODIUM AND HYDROCHLOROTHIAZIDE
Active Ingredient: FOSINOPRIL SODIUM; HYDROCHLOROTHIAZIDE
Strength: 10MG;12.5MG
Dosage Form/Route: TABLET;ORAL
Application: A090228 | Product #001 | TE Code: AB
Applicant: INVAGEN PHARMACEUTICALS INC
Approved: Jul 9, 2009 | RLD: No | RS: No | Type: RX